FAERS Safety Report 24577579 (Version 1)
Quarter: 2024Q4

REPORT INFORMATION
  Report Type: Spontaneous
  Country: US (occurrence: US)
  Receive Date: 20241104
  Receipt Date: 20241104
  Transmission Date: 20250115
  Serious: No
  Sender: PERRIGO
  Company Number: US-PERRIGO-24US007792

PATIENT
  Sex: Female
  Weight: 85.261 kg

DRUGS (3)
  1. POLYETHYLENE GLYCOL 3350 [Suspect]
     Active Substance: POLYETHYLENE GLYCOL 3350
     Indication: Constipation
     Dosage: 17 G, QD
     Route: 048
     Dates: start: 2017, end: 2021
  2. POLYETHYLENE GLYCOL 3350 [Suspect]
     Active Substance: POLYETHYLENE GLYCOL 3350
     Indication: Bowel preparation
     Dosage: 17 G, QD
     Route: 048
     Dates: start: 20240808, end: 20240813
  3. POLYETHYLENE GLYCOL 3350 [Suspect]
     Active Substance: POLYETHYLENE GLYCOL 3350
     Dosage: 17 G, TID
     Route: 048
     Dates: start: 20240814, end: 20240814

REACTIONS (3)
  - Incorrect product administration duration [Unknown]
  - Drug ineffective for unapproved indication [Unknown]
  - Expired product administered [Unknown]

NARRATIVE: CASE EVENT DATE: 20170101
